FAERS Safety Report 5723494-8 (Version None)
Quarter: 2008Q2

REPORT INFORMATION
  Report Type: 
  Country: None (occurrence: None)
  Receive Date: 20080425
  Receipt Date: 20080415
  Transmission Date: 20081010
  Serious: No
  Sender: FDA-Public Use
  Company Number: 2008-175573-NL

PATIENT
  Age: 32 Year
  Sex: Female

DRUGS (3)
  1. MIRTAZAPINE [Suspect]
     Dosage: 30 MG QD/300 MG ONCE ORAL
     Route: 048
     Dates: end: 20080330
  2. DIAZEPAM [Concomitant]
  3. RANITIDINE [Concomitant]

REACTIONS (2)
  - ELECTROCARDIOGRAM QRS COMPLEX PROLONGED [None]
  - OVERDOSE [None]
